FAERS Safety Report 5628756-0 (Version None)
Quarter: 2008Q1

REPORT INFORMATION
  Report Type: 
  Country: None (occurrence: None)
  Receive Date: 20080215
  Receipt Date: 20080215
  Transmission Date: 20080703
  Serious: Yes (Other)
  Sender: FDA-Public Use
  Company Number: None

PATIENT
  Age: 49 Year
  Sex: Male
  Weight: 97 kg

DRUGS (2)
  1. MIRAPEX [Suspect]
     Indication: FIBROMYALGIA
     Dosage: 0.25 BID PO
     Route: 048
     Dates: start: 20050801, end: 20051231
  2. MIRAPEX [Suspect]
     Indication: FIBROMYALGIA
     Dosage: 0.5MG BID PO
     Route: 048
     Dates: start: 20060101, end: 20071224

REACTIONS (2)
  - PATHOLOGICAL GAMBLING [None]
  - THINKING ABNORMAL [None]
